FAERS Safety Report 8277715-0 (Version None)
Quarter: 2012Q2

REPORT INFORMATION
  Report Type: 
  Country: None (occurrence: None)
  Receive Date: 20120412
  Receipt Date: 20120411
  Transmission Date: 20120825
  Serious: Yes (Hospitalization, Other)
  Sender: FDA-Public Use
  Company Number: DK-JNJFOC-20120400397

PATIENT
  Sex: Male

DRUGS (15)
  1. RITUXIMAB [Suspect]
     Route: 042
     Dates: start: 20110905
  2. VINCRISTINE [Suspect]
     Indication: MALIGNANT LYMPHOID NEOPLASM
     Route: 042
     Dates: start: 20110822
  3. VINCRISTINE [Suspect]
     Route: 042
     Dates: start: 20110905
  4. DOXORUBICIN HCL [Suspect]
     Route: 042
     Dates: start: 20110822
  5. WARFARIN SODIUM [Suspect]
     Indication: DEEP VEIN THROMBOSIS
     Route: 048
     Dates: start: 20111205
  6. RITUXIMAB [Suspect]
     Route: 042
     Dates: start: 20120123
  7. PREDNISONE TAB [Suspect]
     Route: 048
     Dates: start: 20110822
  8. NEUPOGEN [Suspect]
     Indication: MALIGNANT LYMPHOID NEOPLASM
     Route: 042
     Dates: start: 20110906
  9. CYCLOPHOSPHAMIDE [Suspect]
     Route: 042
     Dates: start: 20110822
  10. PREDNISONE TAB [Suspect]
     Indication: MALIGNANT LYMPHOID NEOPLASM
     Route: 048
     Dates: start: 20110905
  11. NEUPOGEN [Suspect]
     Route: 042
     Dates: start: 20110823
  12. CYCLOPHOSPHAMIDE [Suspect]
     Indication: MALIGNANT LYMPHOID NEOPLASM
     Route: 042
     Dates: start: 20110905
  13. PREDNISONE TAB [Suspect]
     Route: 048
  14. DOXORUBICIN HCL [Suspect]
     Indication: MALIGNANT LYMPHOID NEOPLASM
     Route: 042
     Dates: start: 20110905
  15. RITUXIMAB [Suspect]
     Indication: MALIGNANT LYMPHOID NEOPLASM
     Route: 042
     Dates: start: 20110822

REACTIONS (1)
  - GASTRIC ULCER HAEMORRHAGE [None]
